FAERS Safety Report 12431633 (Version 1)
Quarter: 2016Q2

REPORT INFORMATION
  Report Type: Spontaneous
  Country: US (occurrence: None)
  Receive Date: 20160602
  Receipt Date: 20160602
  Transmission Date: 20160815
  Serious: No
  Sender: FDA-Public Use
  Company Number: None

PATIENT
  Age: 52 Year
  Sex: Male

DRUGS (1)
  1. TASIGNA [Suspect]
     Active Substance: NILOTINIB
     Indication: LEUKAEMIA
     Route: 048
     Dates: start: 20150602

REACTIONS (9)
  - Nausea [None]
  - Vomiting [None]
  - Diarrhoea [None]
  - Heart rate abnormal [None]
  - Headache [None]
  - Rash [None]
  - Back pain [None]
  - Fatigue [None]
  - Myalgia [None]

NARRATIVE: CASE EVENT DATE: 20160601
